FAERS Safety Report 6597796-X (Version None)
Quarter: 2010Q1

REPORT INFORMATION
  Report Type: 
  Country: None (occurrence: None)
  Receive Date: 20100216
  Receipt Date: 20100202
  Transmission Date: 20100710
  Serious: Yes (Hospitalization)
  Sender: FDA-Public Use
  Company Number: 2009-194500-NL

PATIENT
  Age: 24 Year
  Sex: Female
  Weight: 86.1834 kg

DRUGS (2)
  1. NUVARING [Suspect]
     Indication: CONTRACEPTION
     Dates: start: 20070501, end: 20070901
  2. ALEVE (CON.) [Concomitant]

REACTIONS (7)
  - ASPARTATE AMINOTRANSFERASE INCREASED [None]
  - BODY TEMPERATURE INCREASED [None]
  - DEEP VEIN THROMBOSIS [None]
  - DRUG DOSE OMISSION [None]
  - DRUG INEFFECTIVE [None]
  - INTERNATIONAL NORMALISED RATIO DECREASED [None]
  - THROMBOPHLEBITIS SEPTIC [None]
